FAERS Safety Report 6162556-0 (Version None)
Quarter: 2009Q2

REPORT INFORMATION
  Report Type: 
  Country: None (occurrence: None)
  Receive Date: 20090421
  Receipt Date: 20090409
  Transmission Date: 20091009
  Serious: No
  Sender: FDA-Public Use
  Company Number: JP-PFIZER INC-2009171285

PATIENT

DRUGS (15)
  1. GABAPEN [Suspect]
     Dosage: 900 MG, 2X/DAY
     Route: 048
     Dates: start: 20081129, end: 20090119
  2. LIMAS [Concomitant]
     Indication: DEPRESSION
     Dosage: UNK
     Route: 048
     Dates: start: 20060101
  3. SERTRALINE HYDROCHLORIDE [Concomitant]
     Indication: DEPRESSION
     Dosage: UNK
     Dates: start: 20060101
  4. PROTHIADEN [Concomitant]
     Indication: DEPRESSION
     Dosage: UNK
     Route: 048
     Dates: start: 20060101
  5. CRESTOR [Concomitant]
     Indication: HYPERLIPIDAEMIA
     Dosage: UNK
     Route: 048
     Dates: start: 20070101
  6. URINORM [Concomitant]
     Indication: HYPERURICAEMIA
     Dosage: UNK
     Route: 048
     Dates: start: 20070101
  7. ALLEGRA [Concomitant]
     Indication: RASH
     Dosage: UNK
     Route: 048
     Dates: start: 20081214
  8. TAKEPRON [Concomitant]
     Indication: GASTRIC ULCER
     Dosage: UNK
     Route: 048
     Dates: start: 20081201
  9. ALFAROL [Concomitant]
     Indication: OSTEOPOROSIS
     Dosage: UNK
     Route: 048
     Dates: start: 20081001
  10. DEPAKENE [Concomitant]
     Indication: EPILEPSY
     Dosage: UNK
     Route: 048
     Dates: start: 20081112
  11. SILECE [Concomitant]
     Dosage: UNK
     Route: 048
     Dates: start: 20080101
  12. LENDORMIN [Concomitant]
     Indication: INSOMNIA
     Dosage: UNK
     Dates: start: 20080101
  13. PREDNISOLONE [Concomitant]
     Indication: OPTIC NEURITIS
     Dosage: UNK
     Route: 048
     Dates: start: 20080829
  14. ALEVIATIN [Concomitant]
     Indication: EPILEPSY
     Route: 048
     Dates: start: 20081206
  15. LAFUTIDINE [Concomitant]
     Indication: GASTRIC ULCER
     Dosage: UNK
     Route: 048
     Dates: start: 20090113

REACTIONS (1)
  - RENAL IMPAIRMENT [None]
